FAERS Safety Report 6750827-6 (Version None)
Quarter: 2010Q2

REPORT INFORMATION
  Report Type: 
  Country: None (occurrence: None)
  Receive Date: 20100602
  Receipt Date: 20100525
  Transmission Date: 20101027
  Serious: Yes (Life-Threatening, Hospitalization)
  Sender: FDA-Public Use
  Company Number: JP-NOVOPROD-304027

PATIENT
  Age: 28 Year
  Sex: Male
  Weight: 91 kg

DRUGS (17)
  1. NOVORAPID 30 MIX CHU PENFILL [Suspect]
     Indication: TYPE 2 DIABETES MELLITUS
     Dosage: 70 IU, QD
     Route: 058
     Dates: start: 20090101, end: 20090523
  2. NOVORAPID CHU FLEXPEN [Suspect]
     Indication: TYPE 2 DIABETES MELLITUS
     Dosage: UNK
     Route: 058
     Dates: start: 20090118, end: 20090101
  3. LEVEMIR [Suspect]
     Indication: TYPE 2 DIABETES MELLITUS
     Dosage: UNK
     Route: 058
     Dates: start: 20090118, end: 20090101
  4. NOVOLIN N [Concomitant]
     Dosage: (16-0-0-8), U QD
     Dates: start: 20090526, end: 20090605
  5. NOVOLIN R [Concomitant]
     Dosage: (8-8-8-0), U QD
     Dates: start: 20090526, end: 20090605
  6. HUMALOG MIX 50 [Concomitant]
     Dosage: (20+20+20+0) IU, UNK
     Route: 058
     Dates: start: 20090605, end: 20090606
  7. HUMALOG MIX 50 [Concomitant]
     Dosage: (22+24), IU QD
     Dates: start: 20090606
  8. HUMALOG MIX 50 [Concomitant]
     Dosage: 59 IU, QD
     Route: 058
  9. MEVALOTIN [Concomitant]
     Dosage: 10 MG, QD
     Route: 048
     Dates: start: 20071001
  10. ZETIA [Concomitant]
     Dosage: 10 MG, QD
     Route: 048
  11. ZYLORIC                            /00003301/ [Concomitant]
     Dosage: 100 MG, QD
     Route: 048
  12. DEPAKENE [Concomitant]
     Dosage: 400 MG, QD
     Route: 048
  13. MELBIN                             /00082702/ [Concomitant]
     Dosage: 500 MG, QD
     Route: 048
  14. PROMAC                             /00024401/ [Concomitant]
     Dosage: 150 MG, QD
     Route: 048
  15. THYRADIN S [Concomitant]
     Dosage: 100 MEQ, QD
     Route: 048
  16. DESMOPRESSIN ACETATE [Concomitant]
     Dosage: 10 MEQ, QD
     Route: 045
  17. CORTRIL                            /00028601/ [Concomitant]
     Dosage: 10 MG, QD
     Route: 048
     Dates: start: 20071001

REACTIONS (3)
  - ANTI-INSULIN ANTIBODY POSITIVE [None]
  - DIABETES MELLITUS INADEQUATE CONTROL [None]
  - DIABETIC KETOACIDOSIS [None]
